FAERS Safety Report 7705375-3 (Version None)
Quarter: 2011Q3

REPORT INFORMATION
  Report Type: 
  Country: None (occurrence: None)
  Receive Date: 20110818
  Receipt Date: 20110808
  Transmission Date: 20111222
  Serious: Yes (Death)
  Sender: FDA-Public Use
  Company Number: 2011-2502

PATIENT
  Sex: Male

DRUGS (1)
  1. APO-GO AMPOULES (APO-GO) (APOMORPHINE HYDROCHLORIDE) (POMORPHINE HYDRO [Suspect]
     Indication: PRODUCT USED FOR UNKNOWN INDICATION
     Dosage: 2MG/H (WITH A BOLUS OF 0.40ML), (CONTINUOUS), SUBCUTANEOUS
     Route: 058
     Dates: start: 20110621

REACTIONS (1)
  - DEATH [None]
